FAERS Safety Report 25673486 (Version 2)
Quarter: 2025Q3

REPORT INFORMATION
  Report Type: Spontaneous
  Country: US (occurrence: US)
  Receive Date: 20250813
  Receipt Date: 20250828
  Transmission Date: 20251021
  Serious: No
  Sender: ROCHE
  Company Number: US-ROCHE-10000359027

PATIENT
  Sex: Female

DRUGS (2)
  1. ACTEMRA [Suspect]
     Active Substance: TOCILIZUMAB
     Indication: Rheumatoid arthritis
     Dosage: STRENGTH AND DOSE:162MG/0.9M
     Route: 058
     Dates: start: 202307
  2. ACTEMRA [Suspect]
     Active Substance: TOCILIZUMAB
     Route: 065

REACTIONS (8)
  - Feeling hot [Unknown]
  - Joint warmth [Unknown]
  - Joint swelling [Unknown]
  - Peripheral swelling [Unknown]
  - Swelling face [Unknown]
  - Pain in jaw [Unknown]
  - Pain in extremity [Unknown]
  - Arthralgia [Unknown]
